FAERS Safety Report 6221791-3 (Version None)
Quarter: 2009Q2

REPORT INFORMATION
  Report Type: 
  Country: None (occurrence: None)
  Receive Date: 20090608
  Receipt Date: 20090602
  Transmission Date: 20091009
  Serious: Yes (Death)
  Sender: FDA-Public Use
  Company Number: FABR-1000833

PATIENT
  Age: 52 Year
  Sex: Male

DRUGS (17)
  1. FABRAZYME [Suspect]
     Indication: FABRY'S DISEASE
     Dosage: 85 MG, Q2W, INTRAVENOUS, 85 MG, Q2W, INTRAVENOUS
     Route: 042
     Dates: start: 20081117, end: 20090514
  2. FABRAZYME [Suspect]
     Indication: FABRY'S DISEASE
     Dosage: 85 MG, Q2W, INTRAVENOUS, 85 MG, Q2W, INTRAVENOUS
     Route: 042
     Dates: start: 20080731
  3. BENZONATATE [Concomitant]
  4. BUMEX [Concomitant]
  5. CEFADROXIL [Concomitant]
  6. CLARITIN [Concomitant]
  7. DIGOXIN [Concomitant]
  8. DILANTIN [Concomitant]
  9. LYRICA [Concomitant]
  10. METOPROLOL SUCCINATE [Concomitant]
  11. MORPHINE SULFATE INJ [Concomitant]
  12. WARFARIN SODIUM [Concomitant]
  13. MS CONTIN [Concomitant]
  14. NEXIUM [Concomitant]
  15. SLOW-FE (FERROUS SULFATE) [Concomitant]
  16. MULTIVITAMIN [Concomitant]
  17. ASCORBIC ACID [Concomitant]

REACTIONS (10)
  - ANGINA PECTORIS [None]
  - BRAIN STEM INFARCTION [None]
  - CARDIAC DISORDER [None]
  - CEREBROVASCULAR ACCIDENT [None]
  - COAGULOPATHY [None]
  - CONVULSION [None]
  - HYPERSENSITIVITY [None]
  - LEFT VENTRICULAR HYPERTROPHY [None]
  - LYMPHOEDEMA [None]
  - NEUROPATHY PERIPHERAL [None]
